FAERS Safety Report 8982893 (Version 1)
Quarter: 2012Q4

REPORT INFORMATION
  Report Type: Report from Study
  Country: DE (occurrence: DE)
  Receive Date: 20121221
  Receipt Date: 20121221
  Transmission Date: 20130627
  Serious: Yes (Hospitalization)
  Sender: FDA-Public Use
  Company Number: DE-BAXTER-2012BAX027281

PATIENT
  Age: 39 Year
  Sex: Female
  Weight: 100 kg

DRUGS (5)
  1. ENDOXAN 1G [Suspect]
     Indication: BREAST CANCER
     Route: 042
     Dates: start: 20100224
  2. EPIRUBICIN [Suspect]
     Indication: BREAST CANCER
     Route: 042
     Dates: start: 20100224
  3. DOCETAXEL [Suspect]
     Indication: BREAST CANCER
     Route: 042
  4. DOCETAXEL [Suspect]
     Route: 042
     Dates: start: 20100610
  5. BEVACIZUMAB [Suspect]
     Indication: BREAST CANCER
     Route: 042
     Dates: start: 20100224

REACTIONS (3)
  - Nausea [Recovered/Resolved]
  - Mucosal inflammation [Recovered/Resolved]
  - Subcutaneous abscess [Recovered/Resolved]
